FAERS Safety Report 15490820 (Version 1)
Quarter: 2018Q4

REPORT INFORMATION
  Report Type: Report from Study
  Country: None (occurrence: BR)
  Receive Date: 20181011
  Receipt Date: 20181011
  Transmission Date: 20190205
  Serious: Yes (Other)
  Sender: FDA-Public Use
  Company Number: BR-ABBVIE-18K-020-2514643-00

PATIENT
  Sex: Female
  Weight: 89 kg

DRUGS (2)
  1. HUMIRA [Suspect]
     Active Substance: ADALIMUMAB
     Indication: PSORIATIC ARTHROPATHY
     Route: 058
     Dates: start: 20151125
  2. INSULINE [Concomitant]
     Active Substance: INSULIN NOS
     Indication: DIABETES MELLITUS

REACTIONS (14)
  - Oral disorder [Recovering/Resolving]
  - Emotional disorder [Unknown]
  - Food allergy [Recovering/Resolving]
  - Blister rupture [Recovering/Resolving]
  - Throat tightness [Recovering/Resolving]
  - Speech disorder [Recovering/Resolving]
  - Dysphonia [Recovering/Resolving]
  - Blister [Recovering/Resolving]
  - Skin atrophy [Unknown]
  - Wound [Recovering/Resolving]
  - Pharyngeal oedema [Recovering/Resolving]
  - Pruritus [Unknown]
  - Panic reaction [Unknown]
  - Injection site haemorrhage [Unknown]

NARRATIVE: CASE EVENT DATE: 2018
